FAERS Safety Report 6452833-8 (Version None)
Quarter: 2009Q4

REPORT INFORMATION
  Report Type: 
  Country: None (occurrence: None)
  Receive Date: 20091124
  Receipt Date: 20091112
  Transmission Date: 20100525
  Serious: Yes (Other)
  Sender: FDA-Public Use
  Company Number: US-JNJCH-2009029950

PATIENT
  Age: 59 Year
  Sex: Female
  Weight: 81.6 kg

DRUGS (1)
  1. BENADRYL [Suspect]
     Indication: HYPERSENSITIVITY
     Dosage: TEXT:4 TO 6 PER DAY
     Route: 048

REACTIONS (4)
  - LIP SWELLING [None]
  - MUSCLE SPASMS [None]
  - PARAESTHESIA ORAL [None]
  - PHARYNGEAL OEDEMA [None]
